FAERS Safety Report 13078218 (Version 1)
Quarter: 2017Q1

REPORT INFORMATION
  Report Type: Spontaneous
  Country: PT (occurrence: PT)
  Receive Date: 20170102
  Receipt Date: 20170102
  Transmission Date: 20170428
  Serious: Yes (Other)
  Sender: FDA-Public Use
  Company Number: PT-AUROBINDO-AUR-APL-2016-15867

PATIENT
  Age: 73 Year
  Sex: Female

DRUGS (3)
  1. MIRTAZAPINE. [Concomitant]
     Active Substance: MIRTAZAPINE
  2. RISPERIDONE 2MG [Suspect]
     Active Substance: RISPERIDONE
     Indication: PSYCHIATRIC SYMPTOM
     Dosage: 2 MG, DAILY
     Route: 065
  3. OLANZAPINE. [Suspect]
     Active Substance: OLANZAPINE
     Indication: PSYCHIATRIC SYMPTOM

REACTIONS (9)
  - Psychotic disorder due to a general medical condition [Recovered/Resolved]
  - Therapy non-responder [Recovered/Resolved]
  - Extrapyramidal disorder [Recovered/Resolved]
  - Hypocalcaemia [Recovered/Resolved]
  - Hypoparathyroidism [Recovered/Resolved]
  - Hyperphosphataemia [Recovered/Resolved]
  - Ataxia [Recovered/Resolved]
  - Cognitive disorder [Recovered/Resolved]
  - Vitamin D deficiency [Recovered/Resolved]
